FAERS Safety Report 10418828 (Version 1)
Quarter: 2014Q2

REPORT INFORMATION
  Report Type: Report from Study
  Country: US (occurrence: None)
  Receive Date: 20140627
  Receipt Date: 20140627
  Transmission Date: 20141212
  Serious: No
  Sender: FDA-Public Use
  Company Number: CABO-14004288

PATIENT
  Age: 56 Year
  Sex: Female

DRUGS (12)
  1. COMETRIQ [Suspect]
     Indication: RENAL CANCER
     Route: 048
     Dates: start: 20140423
  2. ALBUTEROL (SALBUTAMOL) [Concomitant]
  3. INLYTA (AXITINIB) [Concomitant]
  4. BETAMETHASONE DIPROPIONATE (BETAMETHASONE DIPROPIONATE) [Concomitant]
  5. SYNTHROID (LEVOTHYROXINE SODIUM) [Concomitant]
  6. LORAZEPAM (LORAZEPAM) [Concomitant]
  7. NISOLDIPINE [Concomitant]
  8. ODANSETRON (ODANSETRON) [Concomitant]
  9. OXYCODONE (OXYCODONE) [Concomitant]
  10. COMPAZINE (PROCHLORPERAZINE MALEATE) [Concomitant]
  11. TYLENOL (PARACETAMOL) [Concomitant]
  12. TUMS (CALCIUM CARBONATE) [Concomitant]

REACTIONS (7)
  - Memory impairment [None]
  - Hypersensitivity [None]
  - Vomiting [None]
  - Fatigue [None]
  - Diarrhoea [None]
  - Dry skin [None]
  - Off label use [None]
